FAERS Safety Report 10021134 (Version 2)
Quarter: 2014Q1

REPORT INFORMATION
  Report Type: Spontaneous
  Country: US (occurrence: US)
  Receive Date: 20140319
  Receipt Date: 20140324
  Transmission Date: 20141002
  Serious: Yes (Other)
  Sender: FDA-Public Use
  Company Number: US-PFIZER INC-2014078184

PATIENT
  Age: 67 Year
  Sex: Female
  Weight: 90.7 kg

DRUGS (3)
  1. PREMARIN [Suspect]
     Indication: MENOPAUSAL SYMPTOMS
     Dosage: 0.625 MG, UNK
     Route: 067
     Dates: start: 1994, end: 20140311
  2. TERBINAFINE [Concomitant]
     Dosage: UNK
  3. LEVOTHYROXINE [Concomitant]
     Indication: THYROID DISORDER
     Dosage: UNK

REACTIONS (6)
  - Blood pressure increased [Unknown]
  - Blood cholesterol increased [Unknown]
  - Vulvovaginal mycotic infection [Unknown]
  - Vulvovaginal burning sensation [Unknown]
  - Vaginal discharge [Unknown]
  - Nasopharyngitis [Unknown]
